FAERS Safety Report 25609601 (Version 1)
Quarter: 2025Q3

REPORT INFORMATION
  Report Type: Spontaneous
  Country: EU (occurrence: EU)
  Receive Date: 20250728
  Receipt Date: 20250728
  Transmission Date: 20251020
  Serious: Yes (Hospitalization, Other)
  Sender: AMGEN
  Company Number: EU-AMGEN-FRASP2025124690

PATIENT
  Age: 57 Year
  Sex: Female
  Weight: 44 kg

DRUGS (12)
  1. ADALIMUMAB [Suspect]
     Active Substance: ADALIMUMAB
     Indication: Psoriasis
     Dosage: 1 DOSAGE FORM, Q2WK (40 MG)
     Route: 065
     Dates: start: 202210, end: 2025
  2. VALACYCLOVIR HYDROCHLORIDE [Concomitant]
     Active Substance: VALACYCLOVIR HYDROCHLORIDE
  3. LIPTRUZET [Concomitant]
     Active Substance: ATORVASTATIN CALCIUM\EZETIMIBE
  4. KARDEGIC [Concomitant]
     Active Substance: ASPIRIN DL-LYSINE
  5. NICOTINE [Concomitant]
     Active Substance: NICOTINE
     Dosage: 7 MILLIGRAM, QD
  6. FOLIC ACID [Concomitant]
     Active Substance: FOLIC ACID
     Dosage: 10 MILLIGRAM, QD
  7. Dolipraneorodoz [Concomitant]
  8. TIMOLOL MALEATE [Concomitant]
     Active Substance: TIMOLOL MALEATE
  9. ALPRAZOLAM [Concomitant]
     Active Substance: ALPRAZOLAM
  10. NICOTINELL [Concomitant]
     Active Substance: NICOTINE
  11. AMOXICILLIN [Concomitant]
     Active Substance: AMOXICILLIN
  12. INNOHEP [Concomitant]
     Active Substance: TINZAPARIN SODIUM

REACTIONS (9)
  - Pneumococcal sepsis [Recovered/Resolved]
  - Pneumonia pneumococcal [Recovered/Resolved]
  - Cholestasis [Unknown]
  - Hypercatabolism [Unknown]
  - Arthritis bacterial [Recovered/Resolved]
  - Bursitis infective [Recovered/Resolved]
  - Malnutrition [Unknown]
  - Hypergammaglobulinaemia [Unknown]
  - Anaemia [Unknown]

NARRATIVE: CASE EVENT DATE: 20250414
